FAERS Safety Report 14909985 (Version 1)
Quarter: 2018Q2

REPORT INFORMATION
  Report Type: Spontaneous
  Country: PT (occurrence: PT)
  Receive Date: 20180517
  Receipt Date: 20180517
  Transmission Date: 20180711
  Serious: Yes (Other)
  Sender: FDA-Public Use
  Company Number: PT-MYLANLABS-2018M1032222

PATIENT
  Age: 45 Year
  Sex: Male

DRUGS (2)
  1. KESTINE [Concomitant]
     Active Substance: EBASTINE
     Indication: RHINITIS ALLERGIC
     Route: 048
  2. BRUFEN [Suspect]
     Active Substance: IBUPROFEN
     Indication: PRODUCT USED FOR UNKNOWN INDICATION
     Route: 048

REACTIONS (4)
  - Rhinitis [Recovered/Resolved]
  - Angioedema [Recovered/Resolved]
  - Respiratory distress [Recovered/Resolved]
  - Laryngeal oedema [Recovered/Resolved]
